FAERS Safety Report 4677157-0 (Version None)
Quarter: 2005Q2

REPORT INFORMATION
  Report Type: 
  Country: None (occurrence: None)
  Receive Date: 20050526
  Receipt Date: 20050511
  Transmission Date: 20051028
  Serious: Yes (Other)
  Sender: FDA-Public Use
  Company Number: DSA_26447_2005

PATIENT
  Age: 72 Year
  Sex: Female

DRUGS (7)
  1. CARDIZEM [Suspect]
     Dosage: 360 MG Q DAY PO
     Route: 048
  2. ATENOLOL [Suspect]
     Dosage: 100 MG Q DAY PO
     Route: 048
     Dates: end: 20041223
  3. FRUSEMIDE [Suspect]
     Dosage: 40 MG Q DAY PO
     Route: 048
  4. CANDESARTAN CILEXETIL [Suspect]
     Dosage: 8 MG Q DAY PO
     Route: 048
     Dates: start: 20041015, end: 20041223
  5. ASPIRIN [Concomitant]
     Dosage: 150 MG Q DAY PO
     Route: 048
     Dates: start: 20040615
  6. THYROXINE SODIUM [Concomitant]
  7. PANTOPRAZOLE [Concomitant]

REACTIONS (3)
  - ATRIOVENTRICULAR BLOCK COMPLETE [None]
  - BLOOD CREATININE INCREASED [None]
  - HYPERKALAEMIA [None]
